FAERS Safety Report 5488537-8 (Version None)
Quarter: 2007Q4

REPORT INFORMATION
  Report Type: 
  Country: None (occurrence: None)
  Receive Date: 20071016
  Receipt Date: 20071009
  Transmission Date: 20080405
  Serious: Yes (Life-Threatening)
  Sender: FDA-Public Use
  Company Number: JP-ASTRAZENECA-2007AP06435

PATIENT
  Age: 80 Year
  Sex: Male

DRUGS (4)
  1. DIPRIVAN KIT [Suspect]
     Indication: SEDATION
     Route: 042
     Dates: start: 20070929, end: 20071003
  2. MEROPEN [Concomitant]
     Dosage: DOSE UNKNOWN
     Route: 042
  3. OMEPRAZOLE [Concomitant]
     Dosage: DOSE UNKNOWN
     Route: 042
  4. ELASPOL [Concomitant]
     Dosage: DOSE UNKNOWN
     Route: 042

REACTIONS (2)
  - DELAYED RECOVERY FROM ANAESTHESIA [None]
  - HYPOTONIA [None]
